FAERS Safety Report 7730888-8 (Version None)
Quarter: 2011Q3

REPORT INFORMATION
  Report Type: 
  Country: None (occurrence: None)
  Receive Date: 20110906
  Receipt Date: 20110822
  Transmission Date: 20111222
  Serious: Yes (Other)
  Sender: FDA-Public Use
  Company Number: US-BAYER-2011-079640

PATIENT
  Sex: Female

DRUGS (2)
  1. ALEVE (CAPLET) [Suspect]
     Indication: TOOTHACHE
     Dosage: DAILY DOSE 6 DF
     Route: 048
  2. IBUPROFEN [Suspect]
     Indication: TOOTHACHE
     Dosage: DAILY DOSE 12 DF
     Route: 048

REACTIONS (1)
  - HYPOTHERMIA [None]
